FAERS Safety Report 6786893-1 (Version None)
Quarter: 2010Q2

REPORT INFORMATION
  Report Type: 
  Country: None (occurrence: None)
  Receive Date: 20100621
  Receipt Date: 20100610
  Transmission Date: 20101027
  Serious: Yes (Other)
  Sender: FDA-Public Use
  Company Number: GER/SPN/10/0013701

PATIENT
  Age: 37 Year
  Sex: Male

DRUGS (1)
  1. OMEPRAZOLE [Suspect]
     Indication: DRUG USE FOR UNKNOWN INDICATION

REACTIONS (4)
  - ABDOMINAL PAIN UPPER [None]
  - ANGIOEDEMA [None]
  - BLOOD PRESSURE DECREASED [None]
  - DRUG HYPERSENSITIVITY [None]
